FAERS Safety Report 23935872 (Version 2)
Quarter: 2025Q3

REPORT INFORMATION
  Report Type: Spontaneous
  Country: EU (occurrence: EU)
  Receive Date: 20240604
  Receipt Date: 20250709
  Transmission Date: 20251021
  Serious: Yes (Hospitalization)
  Sender: ROCHE
  Company Number: None

PATIENT
  Age: 81 Year
  Sex: Male

DRUGS (2)
  1. VABYSMO [Suspect]
     Active Substance: FARICIMAB-SVOA
     Indication: Neovascular age-related macular degeneration
     Route: 050
     Dates: start: 20240416, end: 20240416
  2. RHINOCORT AQUA [Concomitant]
     Active Substance: BUDESONIDE

REACTIONS (4)
  - Eye inflammation [Recovering/Resolving]
  - Ocular vasculitis [Recovering/Resolving]
  - Vitritis [Recovering/Resolving]
  - Syringe issue [Unknown]

NARRATIVE: CASE EVENT DATE: 20240501
